FAERS Safety Report 11804744 (Version 2)
Quarter: 2016Q1

REPORT INFORMATION
  Report Type: Spontaneous
  Country: JP (occurrence: JP)
  Receive Date: 20151205
  Receipt Date: 20160216
  Transmission Date: 20160525
  Serious: Yes (Hospitalization, Other)
  Sender: FDA-Public Use
  Company Number: JP-ACCORD-035986

PATIENT
  Age: 40 Year
  Sex: Female
  Weight: 64 kg

DRUGS (1)
  1. METHYLDOPA. [Suspect]
     Active Substance: METHYLDOPA
     Indication: HYPERTENSION
     Dates: start: 201209

REACTIONS (3)
  - Hepatic failure [Unknown]
  - Hepatic encephalopathy [Recovering/Resolving]
  - Hepatitis fulminant [Unknown]
